FAERS Safety Report 5418219-X (Version None)
Quarter: 2007Q3

REPORT INFORMATION
  Report Type: 
  Country: None (occurrence: None)
  Receive Date: 20070817
  Receipt Date: 20070806
  Transmission Date: 20080115
  Serious: Yes (Other)
  Sender: FDA-Public Use
  Company Number: US-ROCHE-510335

PATIENT
  Age: 34 Year
  Sex: Male

DRUGS (2)
  1. ACCUTANE [Suspect]
     Indication: DRUG USE FOR UNKNOWN INDICATION
     Dosage: THE PATIENT WAS DISPENSED ACCUTANE 40 MG CAPSULES ON 10 JULY 2007
     Route: 065
  2. CLARAVIS [Concomitant]
     Indication: DRUG USE FOR UNKNOWN INDICATION
     Dosage: THE PATIENT WAS DISPENSED CLARAVIS 40 MG CAPSULES ON 04 JUNE 2007 AND 01 MAY 2007
     Route: 065

REACTIONS (1)
  - SUICIDAL IDEATION [None]
